FAERS Safety Report 24739503 (Version 1)
Quarter: 2024Q4

REPORT INFORMATION
  Report Type: Spontaneous
  Country: US (occurrence: None)
  Receive Date: 20241216
  Receipt Date: 20241216
  Transmission Date: 20250115
  Serious: Yes (Life-Threatening, Hospitalization)
  Sender: Public
  Company Number: None

PATIENT
  Age: 77 Year
  Sex: Male

DRUGS (1)
  1. METOCLOPRAMIDE HYDROCHLORIDE [Suspect]
     Active Substance: METOCLOPRAMIDE HYDROCHLORIDE
     Indication: Headache
     Dosage: 5.00 MG ONCE INTRAVENOUS?
     Route: 042
     Dates: start: 20240902, end: 20240902

REACTIONS (2)
  - Encephalopathy [None]
  - Dystonia [None]

NARRATIVE: CASE EVENT DATE: 20240904
